FAERS Safety Report 10912893 (Version 2)
Quarter: 2015Q2

REPORT INFORMATION
  Report Type: Report from Study
  Country: JP (occurrence: JP)
  Receive Date: 20150313
  Receipt Date: 20150622
  Transmission Date: 20150821
  Serious: Yes (Death)
  Sender: FDA-Public Use
  Company Number: JP-SA-2015SA030102

PATIENT
  Age: 17 Year
  Sex: Male
  Weight: 55.9 kg

DRUGS (5)
  1. THYMOGLOBULINE [Suspect]
     Active Substance: LAPINE T-LYMPHOCYTE IMMUNE GLOBULIN
     Indication: ACUTE GRAFT VERSUS HOST DISEASE
     Route: 041
     Dates: start: 20130622, end: 20130622
  2. FUNGUARD [Concomitant]
     Active Substance: MICAFUNGIN SODIUM
     Indication: PROPHYLAXIS
     Dates: start: 20130610, end: 20130729
  3. THYMOGLOBULINE [Suspect]
     Active Substance: LAPINE T-LYMPHOCYTE IMMUNE GLOBULIN
     Indication: ACUTE GRAFT VERSUS HOST DISEASE
     Route: 041
     Dates: start: 20130716, end: 20130716
  4. THYMOGLOBULINE [Suspect]
     Active Substance: LAPINE T-LYMPHOCYTE IMMUNE GLOBULIN
     Indication: ACUTE GRAFT VERSUS HOST DISEASE
     Route: 041
     Dates: start: 20130626, end: 20130626
  5. THYMOGLOBULINE [Suspect]
     Active Substance: LAPINE T-LYMPHOCYTE IMMUNE GLOBULIN
     Indication: ACUTE GRAFT VERSUS HOST DISEASE
     Route: 041
     Dates: start: 20130617, end: 20130617

REACTIONS (1)
  - Renal failure [Fatal]

NARRATIVE: CASE EVENT DATE: 20130806
